FAERS Safety Report 21311663 (Version 1)
Quarter: 2022Q3

REPORT INFORMATION
  Report Type: Spontaneous
  Country: US (occurrence: US)
  Receive Date: 20220909
  Receipt Date: 20220909
  Transmission Date: 20221026
  Serious: Yes (Other)
  Sender: FDA-Public Use
  Company Number: US-SA-SAC20220906001522

PATIENT

DRUGS (4)
  1. ZANTAC [Suspect]
     Active Substance: RANITIDINE HYDROCHLORIDE
     Dosage: PRESCRIPTION ZANTAC
     Route: 065
     Dates: start: 2015, end: 2020
  2. ZANTAC [Suspect]
     Active Substance: RANITIDINE HYDROCHLORIDE
     Dosage: OVER THE COUNTER ZANTAC
     Route: 065
     Dates: start: 2015, end: 2020
  3. RANITIDINE HYDROCHLORIDE [Suspect]
     Active Substance: RANITIDINE HYDROCHLORIDE
     Dosage: PRESCRIPTION RANITIDINE
     Route: 065
     Dates: start: 2015, end: 2020
  4. RANITIDINE HYDROCHLORIDE [Suspect]
     Active Substance: RANITIDINE HYDROCHLORIDE
     Dosage: OVER THE COUNTER RANITIDINE
     Route: 065
     Dates: start: 2015, end: 2020

REACTIONS (1)
  - Breast cancer [Unknown]
